FAERS Safety Report 15502222 (Version 3)
Quarter: 2022Q4

REPORT INFORMATION
  Report Type: Report from Study
  Country: US (occurrence: US)
  Receive Date: 20181015
  Receipt Date: 20221221
  Transmission Date: 20230112
  Serious: Yes (Other)
  Sender: FDA-Public Use
  Company Number: US-AMGEN INC.-USASP2018118193

PATIENT
  Age: 53 Year
  Sex: Female

DRUGS (2)
  1. AIMOVIG [Suspect]
     Active Substance: ERENUMAB-AOOE
     Indication: Migraine
     Dosage: 140 MG, QMO
     Route: 058
     Dates: start: 201805, end: 201809
  2. GILENYA [Concomitant]
     Active Substance: FINGOLIMOD HYDROCHLORIDE
     Dosage: UNK (UNK-140MG)

REACTIONS (13)
  - Arthralgia [Not Recovered/Not Resolved]
  - Duodenal ulcer [Unknown]
  - Abdominal distension [Unknown]
  - Gastrointestinal pain [Unknown]
  - Hypertension [Unknown]
  - Injection site bruising [Unknown]
  - Injection site pain [Unknown]
  - Alopecia [Unknown]
  - Fatigue [Unknown]
  - Memory impairment [Unknown]
  - Migraine [Unknown]
  - Feeding disorder [Unknown]
  - Wrong technique in product usage process [Unknown]

NARRATIVE: CASE EVENT DATE: 20180101
